FAERS Safety Report 26070479 (Version 2)
Quarter: 2025Q4

REPORT INFORMATION
  Report Type: Spontaneous
  Country: US (occurrence: US)
  Receive Date: 20251120
  Receipt Date: 20251211
  Transmission Date: 20260117
  Serious: Yes (Hospitalization)
  Sender: CHIMERIX
  Company Number: US-CHIMERIX-US-CHI-25-000507

PATIENT
  Age: 4 Year
  Sex: Male
  Weight: 20.195 kg

DRUGS (8)
  1. MODEYSO [Suspect]
     Active Substance: DORDAVIPRONE
     Indication: Brain stem glioma
     Dosage: 250 MILLIGRAM, WEEKLY
     Route: 048
     Dates: start: 20251101
  2. AMLODIPINE BESYLATE [Concomitant]
     Active Substance: AMLODIPINE BESYLATE
     Indication: Product used for unknown indication
  3. AVASTIN [Concomitant]
     Active Substance: BEVACIZUMAB
     Indication: Product used for unknown indication
  4. VITAMIN D3 [Concomitant]
     Active Substance: CHOLECALCIFEROL
     Indication: Product used for unknown indication
     Dosage: UNK
  5. DEXAMETHASONE [Concomitant]
     Active Substance: DEXAMETHASONE
     Indication: Product used for unknown indication
     Dosage: UNK
  6. FAMOTIDINE [Concomitant]
     Active Substance: FAMOTIDINE
     Indication: Product used for unknown indication
     Dosage: UNK
  7. FERROUS SULFATE [Concomitant]
     Active Substance: FERROUS SULFATE
     Indication: Product used for unknown indication
     Dosage: UNK
  8. LACTULOSE [Concomitant]
     Active Substance: LACTULOSE
     Indication: Product used for unknown indication
     Dosage: UNK

REACTIONS (5)
  - Cerebral microhaemorrhage [Unknown]
  - Lethargy [Unknown]
  - Blood pressure increased [Unknown]
  - Neoplasm progression [Unknown]
  - Musculoskeletal stiffness [Unknown]

NARRATIVE: CASE EVENT DATE: 20251113
